FAERS Safety Report 5071514-9 (Version None)
Quarter: 2006Q3

REPORT INFORMATION
  Report Type: 
  Country: None (occurrence: None)
  Receive Date: 20060803
  Receipt Date: 20060803
  Transmission Date: 20061208
  Serious: No
  Sender: FDA-Public Use
  Company Number: None

PATIENT
  Age: 63 Year
  Sex: Male
  Weight: 88.4514 kg

DRUGS (2)
  1. LISINOPRIL [Suspect]
     Dosage: 1 TABLET PER DAY  PO
     Route: 048
     Dates: start: 20060424, end: 20060425
  2. LISINOPRIL [Suspect]
     Dosage: 1 TABLET PER DAY PO
     Route: 048
     Dates: start: 20060722, end: 20060729

REACTIONS (6)
  - BLOOD PRESSURE DECREASED [None]
  - DIARRHOEA [None]
  - DISORIENTATION [None]
  - DIZZINESS [None]
  - NAUSEA [None]
  - VOMITING [None]
